FAERS Safety Report 8510413-4 (Version None)
Quarter: 2012Q3

REPORT INFORMATION
  Report Type: 
  Country: None (occurrence: None)
  Receive Date: 20120713
  Receipt Date: 20120710
  Transmission Date: 20120928
  Serious: Yes (Hospitalization)
  Sender: FDA-Public Use
  Company Number: US-AMGEN-USASP2011014784

PATIENT
  Age: 34 Year
  Sex: Male
  Weight: 158.46 kg

DRUGS (28)
  1. BENADRYL [Concomitant]
     Dosage: UNK UNK, PRN
  2. HYLIRA [Concomitant]
     Indication: PSORIASIS
     Dosage: UNK UNK, BID
     Route: 061
  3. LISINOPRIL [Concomitant]
     Indication: HYPERTENSION
     Dosage: 40 MG, QD
     Route: 048
  4. CLOBEX [Concomitant]
  5. CLONIDINE [Concomitant]
     Indication: HYPERTENSION
     Dosage: UNK UNK, PRN
  6. COLACE [Concomitant]
     Dosage: UNK
  7. INSULIN LISPRO [Concomitant]
     Indication: TYPE 2 DIABETES MELLITUS
     Dosage: 25 IU, AC
  8. OLUX [Concomitant]
     Dosage: UNK UNK, BID
  9. ASPIRIN [Concomitant]
     Indication: PSORIASIS
     Dosage: UNK UNK, BID
     Route: 061
  10. SORIATANE [Concomitant]
     Dosage: 25 MG, QD
     Route: 048
  11. ANUSOL [Concomitant]
     Dosage: UNK
  12. VICODIN [Concomitant]
     Dosage: UNK UNK, PRN
     Route: 048
  13. SALEX [Concomitant]
     Dosage: UNK UNK, BID
  14. MIRALAX [Concomitant]
     Dosage: UNK
  15. CLOBETASOL 0.05% [Concomitant]
     Indication: PSORIASIS
     Dosage: UNK UNK, BID
     Route: 061
  16. METFORMIN HYDROCHLORIDE [Concomitant]
     Indication: TYPE 2 DIABETES MELLITUS
     Dosage: 1000 MG, BID
     Route: 048
  17. ACETAMINOPHEN AND OXYCODONE HCL [Concomitant]
     Dosage: UNK
     Route: 048
  18. HUMALOG [Concomitant]
     Indication: DIABETES MELLITUS
     Dosage: UNK
  19. PERPHENAZINE [Concomitant]
     Dosage: 4 MG, BID
  20. ATIVAN [Concomitant]
     Dosage: 1 MG, PRN
     Route: 048
  21. SIMETHICONE [Concomitant]
     Dosage: UNK
  22. LANTUS [Concomitant]
     Indication: TYPE 2 DIABETES MELLITUS
     Dosage: 50 IU, BID
  23. LANTUS [Concomitant]
     Dosage: 110 IU, BID
     Route: 058
  24. TRIAMCINOLONE [Concomitant]
  25. ENBREL [Suspect]
     Indication: PSORIASIS
     Dosage: 50 MG, 2 TIMES/WK
     Route: 058
     Dates: start: 20101015
  26. HYDROCHLOROTHIAZIDE [Concomitant]
     Indication: HYPERTENSION
     Dosage: 25 MG, QD
     Route: 048
  27. DIPHENHYDRAMINE HCL [Concomitant]
     Indication: PRURITUS
     Dosage: UNK
  28. METHOTREXATE [Concomitant]
     Indication: PSORIASIS
     Dosage: UNK

REACTIONS (13)
  - SCHIZOAFFECTIVE DISORDER [None]
  - NARCISSISTIC PERSONALITY DISORDER [None]
  - DIABETES MELLITUS INADEQUATE CONTROL [None]
  - TREATMENT NONCOMPLIANCE [None]
  - PSORIASIS [None]
  - SKIN DISORDER [None]
  - SCAB [None]
  - ANTIBIOTIC RESISTANT STAPHYLOCOCCUS TEST POSITIVE [None]
  - PAIN [None]
  - SKIN HAEMORRHAGE [None]
  - GAIT DISTURBANCE [None]
  - PARAESTHESIA [None]
  - MUSCULAR WEAKNESS [None]
